FAERS Safety Report 6201153-5 (Version None)
Quarter: 2009Q2

REPORT INFORMATION
  Report Type: 
  Country: None (occurrence: None)
  Receive Date: 20090526
  Receipt Date: 20090515
  Transmission Date: 20091009
  Serious: Yes (Death)
  Sender: FDA-Public Use
  Company Number: SE-JNJFOC-20090504709

PATIENT
  Sex: Female
  Weight: 32 kg

DRUGS (6)
  1. REMICADE [Suspect]
     Route: 042
  2. REMICADE [Suspect]
     Route: 042
  3. REMICADE [Suspect]
     Indication: CROHN'S DISEASE
     Route: 042
  4. BUDESONIDE [Concomitant]
     Indication: CROHN'S DISEASE
  5. VITAMINERAL [Concomitant]
     Indication: VITAMIN SUPPLEMENTATION
  6. FOLACIN [Concomitant]
     Indication: VITAMIN SUPPLEMENTATION

REACTIONS (2)
  - DRUG INEFFECTIVE [None]
  - RECTAL CANCER METASTATIC [None]
